FAERS Safety Report 6394005-1 (Version None)
Quarter: 2009Q4

REPORT INFORMATION
  Report Type: 
  Country: None (occurrence: None)
  Receive Date: 20091008
  Receipt Date: 20090925
  Transmission Date: 20100525
  Serious: Yes (Other)
  Sender: FDA-Public Use
  Company Number: PHHY2009GB38451

PATIENT
  Sex: Female

DRUGS (3)
  1. IMATINIB MESYLATE [Suspect]
     Dosage: 200 MG, BID
     Route: 048
  2. IMATINIB MESYLATE [Suspect]
     Dosage: 12000 MG, ONCE/SINGLE
     Route: 048
     Dates: start: 20090829, end: 20090829
  3. IMATINIB MESYLATE [Suspect]
     Dosage: 200 MG, BID

REACTIONS (3)
  - EYE SWELLING [None]
  - JOINT SWELLING [None]
  - OVERDOSE [None]
